FAERS Safety Report 10260795 (Version 2)
Quarter: 2014Q2

REPORT INFORMATION
  Report Type: Spontaneous
  Country: BE (occurrence: BE)
  Receive Date: 20140626
  Receipt Date: 20140626
  Transmission Date: 20141212
  Serious: Yes (Other)
  Sender: FDA-Public Use
  Company Number: BE-UCBSA-117068

PATIENT
  Age: 63 Year
  Sex: Female
  Weight: 43.5 kg

DRUGS (13)
  1. CIMZIA [Suspect]
     Indication: RHEUMATOID ARTHRITIS
     Dosage: 200 MG, EV 2 WEEKS(QOW)
     Route: 058
     Dates: start: 20121025, end: 20140127
  2. HYDROXYCHLOROQUINE [Suspect]
     Indication: RHEUMATOID ARTHRITIS
     Dosage: 200 MG, ONCE DAILY (QD)
     Route: 048
  3. PREDNISOLONE [Concomitant]
     Indication: RHEUMATOID ARTHRITIS
     Dosage: 10 MG, ONCE DAILY (QD)
  4. PREDNISOLONE [Concomitant]
     Dosage: 5 MG, ONCE DAILY (QD)
  5. PREDNISOLONE [Concomitant]
     Dosage: 7.5 MG, ONCE DAILY (QD)
  6. MTX [Concomitant]
     Indication: RHEUMATOID ARTHRITIS
     Dosage: 7.5 MG, WEEKLY (QW)
     Route: 048
  7. CALCIUM [Concomitant]
  8. FOLIUM ACID [Concomitant]
     Indication: PROPHYLAXIS
     Dosage: 10 MG, WEEKLY (QW)
  9. DEDROGYL [Concomitant]
  10. ASPIRINE [Concomitant]
     Dosage: 100 MG, 2X/WEEK
  11. FLUOXETINE [Concomitant]
     Indication: RAYNAUD^S PHENOMENON
  12. LEFLUNOMIDE [Concomitant]
     Dosage: 10 MG, ONCE DAILY (QD)
  13. VITAMIN D [Concomitant]
     Indication: OSTEOPOROSIS
     Dosage: 8 DF, ONCE DAILY (QD)
     Route: 048

REACTIONS (6)
  - Face oedema [Recovered/Resolved]
  - Blister [Recovered/Resolved]
  - Urticaria [Recovered/Resolved]
  - Dyspnoea [Recovered/Resolved]
  - Pruritus [Recovered/Resolved]
  - Rheumatoid arthritis [Recovered/Resolved]
